FAERS Safety Report 9364626 (Version 2)
Quarter: 2013Q3

REPORT INFORMATION
  Report Type: Spontaneous
  Country: DE (occurrence: DE)
  Receive Date: 20130624
  Receipt Date: 20130806
  Transmission Date: 20140515
  Serious: Yes (Hospitalization)
  Sender: FDA-Public Use
  Company Number: DE-JNJFOC-20130611246

PATIENT
  Age: 90 Year
  Sex: Male

DRUGS (6)
  1. XARELTO [Suspect]
     Indication: PRODUCT USED FOR UNKNOWN INDICATION
     Route: 048
     Dates: start: 20120829, end: 20130602
  2. MARCUMAR [Suspect]
     Indication: ATRIAL FIBRILLATION
     Route: 065
  3. SIMVA [Concomitant]
     Route: 065
  4. AMLODIPINE [Concomitant]
     Route: 065
  5. RAMIPRIL [Concomitant]
     Route: 065
  6. OMEP [Concomitant]
     Route: 065

REACTIONS (1)
  - Peripheral embolism [Recovered/Resolved]
